FAERS Safety Report 4532206-5 (Version None)
Quarter: 2004Q4

REPORT INFORMATION
  Report Type: 
  Country: None (occurrence: None)
  Receive Date: 20041217
  Receipt Date: 20041206
  Transmission Date: 20050328
  Serious: Yes (Hospitalization)
  Sender: FDA-Public Use
  Company Number: BR-2004-036234

PATIENT
  Age: 46 Year
  Sex: Female

DRUGS (1)
  1. BETAFERON (INTERFERON BETA - 1B) INJECTION, 250UG [Suspect]
     Indication: MULTIPLE SCLEROSIS
     Dosage: 8 MIU, EVERY 2 D, SUBCUTANEOUS
     Route: 058
     Dates: start: 20040930

REACTIONS (8)
  - ALOPECIA [None]
  - DERMATITIS BULLOUS [None]
  - HEPATIC STEATOSIS [None]
  - HEPATITIS [None]
  - HIRSUTISM [None]
  - PANCREATITIS ACUTE [None]
  - PERIUMBILICAL ABSCESS [None]
  - RENAL IMPAIRMENT [None]
